FAERS Safety Report 5629512-X (Version None)
Quarter: 2008Q1

REPORT INFORMATION
  Report Type: 
  Country: None (occurrence: None)
  Receive Date: 20080214
  Receipt Date: 20080214
  Transmission Date: 20080703
  Serious: No
  Sender: FDA-Public Use
  Company Number: None

PATIENT
  Sex: Female

DRUGS (1)
  1. SERTRALINE [Suspect]
     Dosage: 75MG (3 TABS) DAILY PO
     Route: 048
     Dates: start: 20080204, end: 20080213

REACTIONS (2)
  - DEPRESSION [None]
  - TEARFULNESS [None]
